FAERS Safety Report 16259966 (Version 1)
Quarter: 2019Q2

REPORT INFORMATION
  Report Type: Spontaneous
  Country: US (occurrence: US)
  Receive Date: 20190327
  Receipt Date: 20190327
  Transmission Date: 20190711
  Serious: Yes (Disabling)
  Sender: FDA-Public Use
  Company Number: None

PATIENT
  Age: 67 Year
  Sex: Male
  Weight: 86.18 kg

DRUGS (1)
  1. PENTOYIFYLLIN-E ER 400MG TAB [Suspect]
     Active Substance: PENTOXIFYLLINE
     Indication: NEUROPATHY PERIPHERAL
     Dosage: ?          QUANTITY:400 MG MILLIGRAM(S);?
     Route: 048
     Dates: start: 20190223, end: 20190301

REACTIONS (17)
  - Neuropathy peripheral [None]
  - Pain in extremity [None]
  - Eructation [None]
  - Abdominal pain upper [None]
  - Pain [None]
  - Dyspepsia [None]
  - Insomnia [None]
  - Diarrhoea [None]
  - Chest pain [None]
  - Paraesthesia [None]
  - Haemorrhoids [None]
  - Burning sensation [None]
  - Headache [None]
  - Ear pain [None]
  - Flatulence [None]
  - Haematochezia [None]
  - Malaise [None]

NARRATIVE: CASE EVENT DATE: 20190223
